FAERS Safety Report 18397927 (Version 1)
Quarter: 2020Q4

REPORT INFORMATION
  Report Type: Spontaneous
  Country: CN (occurrence: CN)
  Receive Date: 20201019
  Receipt Date: 20201019
  Transmission Date: 20210114
  Serious: Yes (Death, Other)
  Sender: FDA-Public Use
  Company Number: CN-STRIDES ARCOLAB LIMITED-2020SP012310

PATIENT
  Age: 6 Year
  Sex: Male

DRUGS (18)
  1. TAZOCIN [Suspect]
     Active Substance: PIPERACILLIN SODIUM\TAZOBACTAM SODIUM
     Indication: PYREXIA
     Dosage: 2.25 MILLIGRAM, EVERY 8 HRS
     Route: 065
     Dates: start: 2019
  2. TAZOCIN [Suspect]
     Active Substance: PIPERACILLIN SODIUM\TAZOBACTAM SODIUM
     Indication: GASTROINTESTINAL INFECTION
  3. SULPERAZONE [Suspect]
     Active Substance: CEFOPERAZONE SODIUM\SULBACTAM SODIUM
     Indication: DIARRHOEA
  4. SULPERAZONE [Suspect]
     Active Substance: CEFOPERAZONE SODIUM\SULBACTAM SODIUM
     Indication: GASTROINTESTINAL INFECTION
  5. VANCOMYCIN [Suspect]
     Active Substance: VANCOMYCIN
     Indication: GASTROINTESTINAL INFECTION
  6. IMIPENEM AND CILASTATIN [Suspect]
     Active Substance: CILASTATIN SODIUM\IMIPENEM
     Indication: PYREXIA
     Dosage: 0.68 GRAM, EVERY 6 HRS
     Route: 065
     Dates: start: 2019
  7. LUCITANIB. [Suspect]
     Active Substance: LUCITANIB
     Indication: ACUTE GRAFT VERSUS HOST DISEASE IN INTESTINE
     Dosage: UNK
     Route: 065
     Dates: start: 2019
  8. POSACONAZOLE [Concomitant]
     Active Substance: POSACONAZOLE
     Indication: ANTIFUNGAL PROPHYLAXIS
     Dosage: UNK
     Route: 065
     Dates: start: 2019
  9. IMIPENEM AND CILASTATIN [Suspect]
     Active Substance: CILASTATIN SODIUM\IMIPENEM
     Indication: GASTROINTESTINAL INFECTION
  10. TIGECYCLINE. [Suspect]
     Active Substance: TIGECYCLINE
     Indication: DRUG RESISTANCE
     Dosage: 25 MILLIGRAM, EVERY 12 HRS
     Route: 065
     Dates: start: 2019
  11. VANCOMYCIN [Suspect]
     Active Substance: VANCOMYCIN
     Indication: PYREXIA
     Dosage: 0.4 GRAM, EVERY 12 HRS
     Route: 065
     Dates: start: 2019
  12. VANCOMYCIN [Suspect]
     Active Substance: VANCOMYCIN
     Indication: DIARRHOEA
  13. SULPERAZONE [Suspect]
     Active Substance: CEFOPERAZONE SODIUM\SULBACTAM SODIUM
     Indication: PYREXIA
     Dosage: 1.5 GRAM, EVERY 8 HRS
     Route: 065
     Dates: start: 2019
  14. CYCLOSPORINE. [Suspect]
     Active Substance: CYCLOSPORINE
     Indication: ACUTE GRAFT VERSUS HOST DISEASE IN INTESTINE
     Dosage: UNK
     Route: 065
     Dates: start: 2019
  15. METHYLPREDNISOLONE. [Suspect]
     Active Substance: METHYLPREDNISOLONE
     Indication: ACUTE GRAFT VERSUS HOST DISEASE IN INTESTINE
     Dosage: UNK
     Route: 065
     Dates: start: 2019
  16. TAZOCIN [Suspect]
     Active Substance: PIPERACILLIN SODIUM\TAZOBACTAM SODIUM
     Indication: DIARRHOEA
  17. TIGECYCLINE. [Suspect]
     Active Substance: TIGECYCLINE
     Indication: ENTEROBACTER INFECTION
     Dosage: 50 MILLIGRAM, EVERY 12 HRS
     Route: 065
     Dates: start: 2019
  18. IMIPENEM AND CILASTATIN [Suspect]
     Active Substance: CILASTATIN SODIUM\IMIPENEM
     Indication: DIARRHOEA

REACTIONS (7)
  - Sepsis [Fatal]
  - Diarrhoea [Unknown]
  - Multiple-drug resistance [Unknown]
  - Drug ineffective [Unknown]
  - Escherichia infection [Unknown]
  - Pyrexia [Unknown]
  - Urinary tract infection [Unknown]

NARRATIVE: CASE EVENT DATE: 2019
